FAERS Safety Report 17489577 (Version 1)
Quarter: 2020Q1

REPORT INFORMATION
  Report Type: Spontaneous
  Country: US (occurrence: US)
  Receive Date: 20200303
  Receipt Date: 20200303
  Transmission Date: 20200409
  Serious: Yes (Hospitalization)
  Sender: FDA-Public Use
  Company Number: US-GW PHARMA-201912USGW4505

PATIENT

DRUGS (2)
  1. EPIDIOLEX [Suspect]
     Active Substance: CANNABIDIOL
     Dosage: PUT HIM BACK ON EPIDIOLEX
     Route: 048
  2. EPIDIOLEX [Suspect]
     Active Substance: CANNABIDIOL
     Indication: LENNOX-GASTAUT SYNDROME
     Dosage: 1800 MILLIGRAM, TID
     Route: 048

REACTIONS (8)
  - Sitting disability [Recovering/Resolving]
  - Impaired gastric emptying [Unknown]
  - Seizure [Unknown]
  - Viral infection [Recovering/Resolving]
  - Brain injury [Recovering/Resolving]
  - Speech disorder [Recovering/Resolving]
  - Seizure [Unknown]
  - Dysphagia [Recovering/Resolving]

NARRATIVE: CASE EVENT DATE: 2019
